FAERS Safety Report 6200053-4 (Version None)
Quarter: 2009Q2

REPORT INFORMATION
  Report Type: 
  Country: None (occurrence: None)
  Receive Date: 20090518
  Receipt Date: 20090121
  Transmission Date: 20091009
  Serious: No
  Sender: FDA-Public Use
  Company Number: WAES 0807USA03041

PATIENT
  Age: 66 Year
  Sex: Female

DRUGS (1)
  1. JANUVIA [Suspect]
     Dates: start: 20070101, end: 20080101

REACTIONS (1)
  - DRUG INEFFECTIVE [None]
